FAERS Safety Report 4324971-7 (Version None)
Quarter: 2004Q1

REPORT INFORMATION
  Report Type: 
  Country: None (occurrence: None)
  Receive Date: 20040326
  Receipt Date: 20040322
  Transmission Date: 20041129
  Serious: Yes (Death, Other)
  Sender: FDA-Public Use
  Company Number: DE-BRISTOL-MYERS SQUIBB COMPANY-12538302

PATIENT
  Age: 14 Year
  Sex: Male

DRUGS (4)
  1. CYCLOPHOSPHAMIDE [Suspect]
     Indication: JUVENILE ARTHRITIS
  2. METHOTREXATE [Suspect]
     Indication: JUVENILE ARTHRITIS
  3. CHLORAMBUCIL [Suspect]
     Indication: JUVENILE ARTHRITIS
  4. CORTISONE [Suspect]
     Indication: JUVENILE ARTHRITIS

REACTIONS (5)
  - ACUTE MYELOID LEUKAEMIA [None]
  - LEUKAEMIA [None]
  - MULTI-ORGAN FAILURE [None]
  - SEPSIS [None]
  - STEM CELL TRANSPLANT [None]
